FAERS Safety Report 13178526 (Version 1)
Quarter: 2017Q1

REPORT INFORMATION
  Report Type: Spontaneous
  Country: US (occurrence: US)
  Receive Date: 20170201
  Receipt Date: 20170201
  Transmission Date: 20170428
  Serious: Yes (Hospitalization)
  Sender: FDA-Public Use
  Company Number: None

PATIENT
  Age: 63 Year
  Sex: Female

DRUGS (1)
  1. SEVOFLURANE. [Suspect]
     Active Substance: SEVOFLURANE
     Indication: ROTATOR CUFF REPAIR
     Route: 055
     Dates: start: 20170118

REACTIONS (8)
  - Hyperhidrosis [None]
  - Abdominal pain [None]
  - Vomiting [None]
  - Liver function test increased [None]
  - Somnolence [None]
  - Hypoxia [None]
  - Nausea [None]
  - Tachycardia [None]

NARRATIVE: CASE EVENT DATE: 20170121
